FAERS Safety Report 9104289 (Version 1)
Quarter: 2013Q1

REPORT INFORMATION
  Report Type: Spontaneous
  Country: US (occurrence: US)
  Receive Date: 20130219
  Receipt Date: 20130219
  Transmission Date: 20140127
  Serious: No
  Sender: FDA-Public Use
  Company Number: US-ASTRAZENECA-2013SE09048

PATIENT
  Age: 70 Year
  Sex: Female
  Weight: 73.5 kg

DRUGS (4)
  1. TOPROL XL [Suspect]
     Indication: HYPERTENSION
     Route: 048
  2. CRESTOR [Suspect]
     Indication: BLOOD CHOLESTEROL INCREASED
     Route: 048
     Dates: start: 201201, end: 2012
  3. VITAMINS [Concomitant]
  4. AMLODIPINE [Concomitant]
     Indication: CARDIAC DISORDER

REACTIONS (2)
  - Arthralgia [Unknown]
  - Intentional drug misuse [Unknown]
